FAERS Safety Report 14246682 (Version 10)
Quarter: 2018Q3

REPORT INFORMATION
  Report Type: Spontaneous
  Country: US (occurrence: US)
  Receive Date: 20171204
  Receipt Date: 20180801
  Transmission Date: 20181010
  Serious: Yes (Other)
  Sender: FDA-Public Use
  Company Number: US-PFIZER INC-2017512614

PATIENT
  Age: 65 Year
  Sex: Female

DRUGS (3)
  1. GENOTROPIN MQ [Suspect]
     Active Substance: SOMATROPIN
     Dosage: 0.6 MG, DAILY
     Route: 058
     Dates: start: 201703
  2. GENOTROPIN MQ [Suspect]
     Active Substance: SOMATROPIN
     Dosage: 0.6 MG, DAILY
     Route: 058
     Dates: start: 20170216
  3. GENOTROPIN MQ [Suspect]
     Active Substance: SOMATROPIN
     Dosage: 0.4 MG, UNK
     Route: 058

REACTIONS (12)
  - Malaise [Unknown]
  - Narcolepsy [Unknown]
  - Hypersomnia [Unknown]
  - Ankle fracture [Not Recovered/Not Resolved]
  - Impaired healing [Not Recovered/Not Resolved]
  - Amnesia [Unknown]
  - Somnolence [Unknown]
  - Asthenia [Unknown]
  - Optic nerve neoplasm [Unknown]
  - Drug dose omission [Unknown]
  - Fall [Unknown]
  - Depression [Unknown]
